FAERS Safety Report 6527014-X (Version None)
Quarter: 2009Q4

REPORT INFORMATION
  Report Type: 
  Country: None (occurrence: None)
  Receive Date: 20091229
  Receipt Date: 20091215
  Transmission Date: 20100525
  Serious: Yes (Hospitalization)
  Sender: FDA-Public Use
  Company Number: 003320

PATIENT
  Sex: Female

DRUGS (2)
  1. KEPPRA [Suspect]
     Dosage: (2000 MG)
     Dates: start: 20091207
  2. LORAZEPAM [Concomitant]

REACTIONS (4)
  - CONVULSION [None]
  - EYE ROLLING [None]
  - FALL [None]
  - NAUSEA [None]
